FAERS Safety Report 13646474 (Version 1)
Quarter: 2017Q2

REPORT INFORMATION
  Report Type: Spontaneous
  Country: US (occurrence: US)
  Receive Date: 20170612
  Receipt Date: 20170612
  Transmission Date: 20170830
  Serious: No
  Sender: FDA-Public Use
  Company Number: None

PATIENT
  Age: 57 Year
  Sex: Male
  Weight: 99 kg

DRUGS (3)
  1. BENICAR [Concomitant]
     Active Substance: OLMESARTAN MEDOXOMIL
  2. LIVALO [Suspect]
     Active Substance: PITAVASTATIN CALCIUM
     Indication: BLOOD CHOLESTEROL ABNORMAL
     Dosage: ?          QUANTITY:1 TABLET(S);?DAILY ORAL
     Route: 048
     Dates: start: 20170420, end: 20170601
  3. MULTI-VITAMINS [Concomitant]

REACTIONS (2)
  - Amnesia [None]
  - Cognitive disorder [None]

NARRATIVE: CASE EVENT DATE: 20170601
